FAERS Safety Report 12153948 (Version 1)
Quarter: 2016Q1

REPORT INFORMATION
  Report Type: Spontaneous
  Country: US (occurrence: US)
  Receive Date: 20160307
  Receipt Date: 20160307
  Transmission Date: 20160526
  Serious: Yes (Hospitalization)
  Sender: FDA-Public Use
  Company Number: US-BEH-2016059316

PATIENT
  Age: 29 Year
  Sex: Female
  Weight: 84 kg

DRUGS (18)
  1. HIZENTRA [Suspect]
     Active Substance: HUMAN IMMUNOGLOBULIN G
     Indication: IMMUNODEFICIENCY COMMON VARIABLE
     Route: 058
  2. DIPHENHYDRAMINE. [Concomitant]
     Active Substance: DIPHENHYDRAMINE
  3. ZAFIRLUKAST. [Concomitant]
     Active Substance: ZAFIRLUKAST
  4. IMPLANON [Concomitant]
     Active Substance: ETONOGESTREL
  5. LISINOPRIL. [Concomitant]
     Active Substance: LISINOPRIL
  6. ALBUTEROL. [Concomitant]
     Active Substance: ALBUTEROL
  7. HIZENTRA [Suspect]
     Active Substance: HUMAN IMMUNOGLOBULIN G
     Indication: IMMUNODEFICIENCY COMMON VARIABLE
     Route: 058
  8. GLIPIZIDE. [Concomitant]
     Active Substance: GLIPIZIDE
  9. EPIPEN [Concomitant]
     Active Substance: EPINEPHRINE
  10. FLUTICASONE [Concomitant]
     Active Substance: FLUTICASONE\FLUTICASONE PROPIONATE
  11. SIMVASTATIN. [Concomitant]
     Active Substance: SIMVASTATIN
  12. DIGOXIN. [Concomitant]
     Active Substance: DIGOXIN
  13. CLARITIN [Concomitant]
     Active Substance: LORATADINE
  14. HIZENTRA [Suspect]
     Active Substance: HUMAN IMMUNOGLOBULIN G
     Indication: SELECTIVE IGA IMMUNODEFICIENCY
     Route: 058
  15. GLARGINE [Concomitant]
  16. SYMBICORT [Concomitant]
     Active Substance: BUDESONIDE\FORMOTEROL FUMARATE DIHYDRATE
  17. METOPROLOL. [Concomitant]
     Active Substance: METOPROLOL
  18. INSULIN [Concomitant]
     Active Substance: INSULIN NOS

REACTIONS (1)
  - Blood glucose abnormal [Unknown]

NARRATIVE: CASE EVENT DATE: 20160219
